FAERS Safety Report 10098061 (Version 1)
Quarter: 2014Q2

REPORT INFORMATION
  Report Type: Spontaneous
  Country: US (occurrence: None)
  Receive Date: 20140421
  Receipt Date: 20140421
  Transmission Date: 20141212
  Serious: Yes (Other)
  Sender: FDA-Public Use
  Company Number: 2014P1003058

PATIENT
  Age: 8 Year
  Sex: Female
  Weight: 27.22 kg

DRUGS (1)
  1. ETHOSUXIMIDE [Suspect]
     Indication: CONVULSION
     Route: 048
     Dates: start: 201302

REACTIONS (3)
  - Convulsion [None]
  - Product odour abnormal [None]
  - Product contamination [None]
